FAERS Safety Report 14418477 (Version 1)
Quarter: 2018Q1

REPORT INFORMATION
  Report Type: Spontaneous
  Country: US (occurrence: US)
  Receive Date: 20180119
  Receipt Date: 20180119
  Transmission Date: 20180509
  Serious: Yes (Disabling)
  Sender: FDA-Public Use
  Company Number: None

PATIENT
  Sex: Male
  Weight: 81 kg

DRUGS (7)
  1. ASPIRIN. [Concomitant]
     Active Substance: ASPIRIN
  2. GARLIC. [Concomitant]
     Active Substance: GARLIC
  3. LISINOPRIL. [Concomitant]
     Active Substance: LISINOPRIL
  4. BRILINTA [Suspect]
     Active Substance: TICAGRELOR
     Indication: STENT PLACEMENT
     Dosage: ?          QUANTITY:1 TABLET(S);?
     Route: 048
     Dates: start: 20171117
  5. CARVEDILOL. [Concomitant]
     Active Substance: CARVEDILOL
  6. VITC [Concomitant]
  7. NAC [Concomitant]

REACTIONS (2)
  - Secretion discharge [None]
  - Haemoptysis [None]

NARRATIVE: CASE EVENT DATE: 20180116
